FAERS Safety Report 19398135 (Version 2)
Quarter: 2021Q2

REPORT INFORMATION
  Report Type: Spontaneous
  Country: BE (occurrence: IN)
  Receive Date: 20210610
  Receipt Date: 20210618
  Transmission Date: 20210717
  Serious: Yes (Hospitalization, Other)
  Sender: FDA-Public Use
  Company Number: BE-PFIZER INC-2021609447

PATIENT
  Age: 49 Year
  Sex: Male

DRUGS (15)
  1. ADRIAMYCIN [Suspect]
     Active Substance: DOXORUBICIN HYDROCHLORIDE
     Indication: HODGKIN^S DISEASE NODULAR SCLEROSIS STAGE IV
     Dosage: ESCALATED BEACOPP REGIMEN (4 CYCLES)
     Dates: start: 200602, end: 200604
  2. CYCLOPHOSPHAMIDE. [Suspect]
     Active Substance: CYCLOPHOSPHAMIDE
     Indication: HODGKIN^S DISEASE NODULAR SCLEROSIS STAGE IV
     Dosage: ESCALATED BEACOPP REGIMEN (4 CYCLES)
     Dates: start: 2006
  3. ONCOVIN [Suspect]
     Active Substance: VINCRISTINE SULFATE
     Dosage: ESCALATED BEACOPP REGIMEN (4 CYCLES)
     Dates: start: 2006
  4. ADRIAMYCIN [Suspect]
     Active Substance: DOXORUBICIN HYDROCHLORIDE
     Dosage: BASELINE BEACOPP PATTERN (4 CYCLES)
     Dates: start: 2006
  5. BLEOMYCIN [Suspect]
     Active Substance: BLEOMYCIN SULFATE
     Indication: HODGKIN^S DISEASE NODULAR SCLEROSIS STAGE IV
     Dosage: BASELINE BEACOPP PATTERN (4 CYCLES)
     Dates: start: 2006
  6. BLEOMYCIN [Suspect]
     Active Substance: BLEOMYCIN SULFATE
     Dosage: BASELINE BEACOPP PATTERN (4 CYCLES)
     Dates: start: 200602, end: 200604
  7. ETOPOSIDE. [Suspect]
     Active Substance: ETOPOSIDE
     Indication: HODGKIN^S DISEASE NODULAR SCLEROSIS STAGE IV
     Dosage: ESCALATED BEACOPP REGIMEN (4 CYCLES)
     Dates: start: 200602, end: 200604
  8. PREDNISONE. [Suspect]
     Active Substance: PREDNISONE
     Dosage: ESCALATED BEACOPP REGIMEN (4 CYCLES)
     Dates: start: 200602, end: 200604
  9. CYCLOPHOSPHAMIDE. [Suspect]
     Active Substance: CYCLOPHOSPHAMIDE
     Dosage: ESCALATED BEACOPP REGIMEN (4 CYCLES)
     Dates: start: 200602, end: 200604
  10. PROCARBAZINE [Suspect]
     Active Substance: PROCARBAZINE
     Indication: HODGKIN^S DISEASE NODULAR SCLEROSIS STAGE IV
     Dosage: BASELINE BEACOPP PATTERN (4 CYCLES)
     Dates: start: 200602, end: 200604
  11. ETOPOSIDE. [Suspect]
     Active Substance: ETOPOSIDE
     Indication: NON-HODGKIN^S LYMPHOMA
     Dosage: ESCALATED BEACOPP REGIMEN (4 CYCLES)
     Dates: start: 2006
  12. PROCARBAZINE [Suspect]
     Active Substance: PROCARBAZINE
     Dosage: BASELINE BEACOPP PATTERN (4 CYCLES)
     Dates: start: 2006
  13. ONCOVIN [Suspect]
     Active Substance: VINCRISTINE SULFATE
     Indication: HODGKIN^S DISEASE NODULAR SCLEROSIS STAGE IV
     Dosage: ESCALATED BEACOPP REGIMEN (4 CYCLES)
     Dates: start: 200602, end: 200604
  14. PREDNISONE. [Suspect]
     Active Substance: PREDNISONE
     Indication: HODGKIN^S DISEASE NODULAR SCLEROSIS STAGE IV
     Dosage: ESCALATED BEACOPP REGIMEN (4 CYCLES)
     Dates: start: 2006
  15. LAMIVUDINA [Suspect]
     Active Substance: LAMIVUDINE
     Dosage: UNK

REACTIONS (7)
  - Hepatitis B reactivation [Recovered/Resolved]
  - Hepatic failure [Recovered/Resolved]
  - Decreased appetite [Recovered/Resolved]
  - Fatigue [Recovered/Resolved]
  - Jaundice [Recovered/Resolved]
  - Generalised oedema [Recovered/Resolved]
  - Hepatic encephalopathy [Recovered/Resolved]

NARRATIVE: CASE EVENT DATE: 2006
